FAERS Safety Report 15551103 (Version 1)
Quarter: 2018Q4

REPORT INFORMATION
  Report Type: Spontaneous
  Country: US (occurrence: US)
  Receive Date: 20181025
  Receipt Date: 20181025
  Transmission Date: 20190205
  Serious: No
  Sender: FDA-Public Use
  Company Number: CN-ASTRAZENECA-2018SF39385

PATIENT
  Sex: Female

DRUGS (1)
  1. NEXIUM 24HR [Suspect]
     Active Substance: ESOMEPRAZOLE MAGNESIUM
     Route: 048

REACTIONS (4)
  - Gastrooesophageal reflux disease [Recovered/Resolved]
  - Salivary hypersecretion [Recovered/Resolved]
  - Dyspepsia [Recovered/Resolved]
  - Incorrect product administration duration [Unknown]
